FAERS Safety Report 9127796 (Version 1)
Quarter: 2013Q1

REPORT INFORMATION
  Report Type: Spontaneous
  Country: US (occurrence: US)
  Receive Date: 20130228
  Receipt Date: 20130228
  Transmission Date: 20140127
  Serious: Yes (Disabling, Other)
  Sender: FDA-Public Use
  Company Number: US-GLAXOSMITHKLINE-A0999962A

PATIENT
  Age: 11 Year
  Sex: Female

DRUGS (6)
  1. LAMICTAL [Suspect]
     Indication: CONVULSION
     Dosage: 200MG TWICE PER DAY
     Route: 048
  2. LAMICTAL [Suspect]
     Indication: PRODUCT USED FOR UNKNOWN INDICATION
     Dates: start: 2004
  3. CLONAZEPAM [Concomitant]
  4. ZONISAMIDE [Concomitant]
  5. DIASTAT [Concomitant]
  6. EPINEPHRINE [Concomitant]

REACTIONS (6)
  - Rash [Unknown]
  - Blister [Unknown]
  - Rash vesicular [Unknown]
  - Oral mucosal blistering [Unknown]
  - Urticaria [Unknown]
  - Off label use [Unknown]
